FAERS Safety Report 24090919 (Version 1)
Quarter: 2024Q3

REPORT INFORMATION
  Report Type: Spontaneous
  Country: SE (occurrence: SE)
  Receive Date: 20240715
  Receipt Date: 20240715
  Transmission Date: 20241017
  Serious: Yes (Hospitalization)
  Sender: MYLAN
  Company Number: None

PATIENT
  Age: 85 Year
  Sex: Female

DRUGS (20)
  1. CANDESARTAN [Suspect]
     Active Substance: CANDESARTAN
     Indication: Product used for unknown indication
     Dosage: UNK
     Route: 065
  2. ENALAPRIL [Suspect]
     Active Substance: ENALAPRIL
     Indication: Cardiac failure
     Dosage: 2.5 MILLIGRAM, QD
     Route: 048
     Dates: start: 20240603, end: 20240619
  3. PREDNISOLONE [Concomitant]
     Active Substance: PREDNISOLONE
     Indication: Rheumatic disorder
     Dosage: 1 DOSAGE FORM, QD (1 TABLET AT 08.00 O?CLOCK)
     Route: 065
     Dates: start: 20231026
  4. SULFASALAZINE [Concomitant]
     Active Substance: SULFASALAZINE
     Indication: Antiinflammatory therapy
     Dosage: UNK
     Route: 065
     Dates: start: 20211102
  5. ELIQUIS [Concomitant]
     Active Substance: APIXABAN
     Indication: Thrombosis prophylaxis
     Dosage: 5 MILLIGRAM, BID
     Route: 065
     Dates: start: 20181116
  6. CYANOCOBALAMIN [Concomitant]
     Active Substance: CYANOCOBALAMIN
     Indication: Vitamin B12 deficiency
     Dosage: 1 DOSAGE FORM, QD (1 TABLET 8 O?CLOCK)
     Route: 065
     Dates: start: 20231026
  7. JARDIANCE [Concomitant]
     Active Substance: EMPAGLIFLOZIN
     Indication: Cardiac failure
     Dosage: 10 MILLIGRAM, QD
     Route: 065
     Dates: start: 20240516
  8. Furix [Concomitant]
     Indication: Diuretic therapy
     Dosage: 1-2 TABLETS WHEN NEEDED
     Route: 065
     Dates: start: 20240411
  9. METHOTREXATE [Concomitant]
     Active Substance: METHOTREXATE
     Indication: Antiinflammatory therapy
     Dosage: 8 DOSAGE FORM, QW (8 TABLETS EVERY WEEK)
     Route: 065
     Dates: start: 20220927
  10. UREA [Concomitant]
     Active Substance: UREA
     Indication: Dry skin
     Dosage: UNK, BID (1 APPLICATION 2  TIMES DAILY)
     Route: 065
     Dates: start: 20220209
  11. PROLIA [Concomitant]
     Active Substance: DENOSUMAB
     Indication: Prophylaxis
     Dosage: UNK
     Route: 065
     Dates: start: 20201125
  12. OXYCODONE G.L. [Concomitant]
     Indication: Pain
     Dosage: UNK, PRN (1 TABLET WHEN NEEDED 2 TIMES DAILY)
     Route: 065
     Dates: start: 20230929
  13. CALCIUM CARBONATE\CHOLECALCIFEROL [Concomitant]
     Active Substance: CALCIUM CARBONATE\CHOLECALCIFEROL
     Indication: Vitamin supplementation
     Dosage: 1 DOSAGE FORM, QD (1 CHEWABLE TABLET AT 8 O?CLOCK)
     Route: 065
     Dates: start: 20231025
  14. CALCIUM CARBONATE\CHOLECALCIFEROL [Concomitant]
     Active Substance: CALCIUM CARBONATE\CHOLECALCIFEROL
     Indication: Mineral supplementation
  15. LAXIMYL [Concomitant]
     Dosage: 1 DOSAGE FORM, QD (1 SACHET AT 8 AM)
     Route: 065
     Dates: start: 20210224
  16. ACETAMINOPHEN [Concomitant]
     Active Substance: ACETAMINOPHEN
     Indication: Pain
     Dosage: 1 GRAM, Q8H
     Route: 065
     Dates: start: 20230927
  17. OMEPRAZOLE [Concomitant]
     Active Substance: OMEPRAZOLE
     Indication: Abdominal discomfort
     Dosage: 20 MILLIGRAM, QD
     Route: 065
     Dates: start: 20200825
  18. METOPROLOL [Concomitant]
     Active Substance: METOPROLOL
     Indication: Prophylaxis
     Dosage: 25 MILLIGRAM, QD
     Route: 065
     Dates: start: 20231026
  19. VAGIFEM [Concomitant]
     Active Substance: ESTRADIOL
     Indication: Vaginal disorder
     Dosage: (AS PRESCRIBED. 1 VAGINAL TABLET ONCE DAILY FOR 2 WEEKS. THEREAFTER 1 VAGINAL TABLET 2 TIMES/WK)
     Dates: start: 20200706
  20. FOLIC ACID [Concomitant]
     Active Substance: FOLIC ACID
     Indication: Haemolysis
     Dosage: 2 DOSAGE FORM, QW (TABLETS EVERY 7TH DAY)
     Route: 065

REACTIONS (3)
  - Inappropriate antidiuretic hormone secretion [Recovered/Resolved]
  - Hallucination [Recovered/Resolved]
  - Confusional state [Recovered/Resolved]

NARRATIVE: CASE EVENT DATE: 20240619
